FAERS Safety Report 5397559-7 (Version None)
Quarter: 2007Q3

REPORT INFORMATION
  Report Type: 
  Country: None (occurrence: None)
  Receive Date: 20070726
  Receipt Date: 20070712
  Transmission Date: 20080115
  Serious: Yes (Hospitalization)
  Sender: FDA-Public Use
  Company Number: GB-BAXTER-2007BH005334

PATIENT
  Age: 55 Year
  Sex: Female
  Weight: 60 kg

DRUGS (13)
  1. SEVOFLURANE [Suspect]
     Indication: GENERAL ANAESTHESIA
     Dosage: DOSE UNIT:UNKNOWN
     Route: 055
     Dates: start: 20061201
  2. FORANE [Suspect]
     Indication: GENERAL ANAESTHESIA
     Dosage: DOSE UNIT:UNKNOWN
     Route: 055
     Dates: start: 20060601
  3. PROPOFOL [Suspect]
     Indication: GENERAL ANAESTHESIA
     Dosage: DOSE UNIT:UNKNOWN
     Route: 042
     Dates: start: 20050701
  4. PROPOFOL [Suspect]
     Route: 042
     Dates: start: 20060601
  5. GABAPENTIN [Suspect]
     Indication: NEURALGIA
     Route: 048
     Dates: start: 20050501
  6. ALFENTANIL [Suspect]
     Indication: GENERAL ANAESTHESIA
     Route: 042
     Dates: start: 20050701
  7. FENTANYL TRANSDERMAL SYSTEM [Suspect]
     Indication: GENERAL ANAESTHESIA
     Route: 042
     Dates: start: 20060601
  8. FENTANYL TRANSDERMAL SYSTEM [Suspect]
     Route: 042
     Dates: start: 20050701
  9. FENTANYL TRANSDERMAL SYSTEM [Suspect]
     Route: 042
     Dates: start: 20061201
  10. CODEINE SUL TAB [Concomitant]
     Dates: start: 20050501
  11. DEXAMETHASONE 0.5MG TAB [Concomitant]
     Dates: start: 20050701
  12. OXYGEN [Concomitant]
     Route: 055
     Dates: start: 20060601
  13. ACETAMINOPHEN [Concomitant]
     Dates: start: 20050501

REACTIONS (4)
  - DRUG INTERACTION [None]
  - DYSTONIA [None]
  - MYOTONIA [None]
  - SINUS TACHYCARDIA [None]
